FAERS Safety Report 19987800 (Version 1)
Quarter: 2021Q4

REPORT INFORMATION
  Report Type: Spontaneous
  Country: CN (occurrence: CN)
  Receive Date: 20211023
  Receipt Date: 20211023
  Transmission Date: 20220304
  Serious: Yes (Death, Hospitalization, Other)
  Sender: FDA-Public Use
  Company Number: CN-ABBVIE-21K-035-4126181-00

PATIENT
  Age: 11 Month
  Sex: Female

DRUGS (1)
  1. VALPROATE SODIUM [Suspect]
     Active Substance: VALPROATE SODIUM
     Indication: Seizure prophylaxis
     Route: 048
     Dates: start: 201210

REACTIONS (12)
  - Hyperglycinaemia [Fatal]
  - Tachypnoea [Unknown]
  - Pallor [Unknown]
  - Methylmalonic aciduria [Unknown]
  - Acidosis [Unknown]
  - Dehydration [Unknown]
  - Coma [Unknown]
  - Body temperature decreased [Unknown]
  - Cough [Unknown]
  - Depression [Unknown]
  - Dry skin [Unknown]
  - Dry mouth [Unknown]

NARRATIVE: CASE EVENT DATE: 20130601
